FAERS Safety Report 24082872 (Version 2)
Quarter: 2024Q4

REPORT INFORMATION
  Report Type: Report from Study
  Country: TH (occurrence: TH)
  Receive Date: 20240712
  Receipt Date: 20241010
  Transmission Date: 20250115
  Serious: Yes (Hospitalization, Other)
  Sender: ROCHE
  Company Number: TH-ROCHE-10000024149

PATIENT
  Age: 71 Year
  Sex: Female

DRUGS (2)
  1. KADCYLA [Suspect]
     Active Substance: ADO-TRASTUZUMAB EMTANSINE
     Indication: Breast cancer metastatic
     Dosage: 160 MG, 100 MG
     Route: 065
  2. KADCYLA [Suspect]
     Active Substance: ADO-TRASTUZUMAB EMTANSINE
     Route: 065

REACTIONS (4)
  - Seizure [Unknown]
  - Loss of consciousness [Unknown]
  - Neurological symptom [Unknown]
  - Gait inability [Unknown]

NARRATIVE: CASE EVENT DATE: 20240625
